FAERS Safety Report 24388360 (Version 1)
Quarter: 2024Q4

REPORT INFORMATION
  Report Type: Spontaneous
  Country: US (occurrence: None)
  Receive Date: 20241002
  Receipt Date: 20241002
  Transmission Date: 20250114
  Serious: Yes (Hospitalization)
  Sender: Public
  Company Number: None

PATIENT
  Sex: Female

DRUGS (11)
  1. RINVOQ [Suspect]
     Active Substance: UPADACITINIB
     Indication: Rheumatoid arthritis
  2. ALENDRONATE [Concomitant]
     Active Substance: ALENDRONATE SODIUM
  3. ASPIRIN CHW 81MG [Concomitant]
  4. CALC ANTACID CHW 500MG [Concomitant]
  5. ESCITALOPRAM [Concomitant]
     Active Substance: ESCITALOPRAM OXALATE
  6. FLUTICASONE [Concomitant]
     Active Substance: FLUTICASONE
  7. GABAPENTIN TAB 600MG [Concomitant]
  8. METOPROL TAR TAB 25MG [Concomitant]
  9. MUCUS RELIEF TAB 600MG ER [Concomitant]
  10. OMNIPAQUE INJ 350MGiML [Concomitant]
  11. OXYCOD/APAP TAB 7.5-325 [Concomitant]

REACTIONS (1)
  - Nonspecific reaction [None]
